FAERS Safety Report 18824731 (Version 1)
Quarter: 2021Q1

REPORT INFORMATION
  Report Type: Spontaneous
  Country: US (occurrence: US)
  Receive Date: 20210201
  Receipt Date: 20210201
  Transmission Date: 20210419
  Serious: Yes (Other)
  Sender: FDA-Public Use
  Company Number: US-ABBVIE-20K-163-3297387-00

PATIENT
  Age: 72 Year
  Sex: Male
  Weight: 68.1 kg

DRUGS (2)
  1. HUMIRA [Suspect]
     Active Substance: ADALIMUMAB
     Indication: RHEUMATOID ARTHRITIS
     Route: 058
     Dates: start: 202001
  2. CHLORPHEN 12 [Concomitant]
     Indication: HYPERSENSITIVITY

REACTIONS (3)
  - Myalgia [Not Recovered/Not Resolved]
  - Nephrolithiasis [Recovered/Resolved]
  - Crystal urine present [Unknown]

NARRATIVE: CASE EVENT DATE: 2020
